FAERS Safety Report 9239473 (Version 4)
Quarter: 2013Q2

REPORT INFORMATION
  Report Type: Report from Study
  Country: JP (occurrence: JP)
  Receive Date: 20130418
  Receipt Date: 20130517
  Transmission Date: 20140414
  Serious: Yes (Hospitalization)
  Sender: FDA-Public Use
  Company Number: JP-PFIZER INC-2013107326

PATIENT
  Age: 47 Year
  Sex: Female
  Weight: 32.8 kg

DRUGS (8)
  1. SIROLIMUS [Suspect]
     Indication: LYMPHANGIOLEIOMYOMATOSIS
     Dosage: 2 MG, 1X/DAY
     Route: 048
     Dates: start: 20121214, end: 20130103
  2. SIROLIMUS [Suspect]
     Dosage: 1 MG, 1X/DAY
     Route: 048
     Dates: start: 20130104, end: 20130206
  3. SIROLIMUS [Suspect]
     Dosage: 2 MG, 1X/DAY
     Route: 048
     Dates: start: 20130207, end: 20130213
  4. SIROLIMUS [Suspect]
     Dosage: 1 MG, 1X/DAY
     Route: 048
     Dates: start: 20130214
  5. SPIRIVA [Concomitant]
     Indication: LYMPHANGIOLEIOMYOMATOSIS
     Dosage: UNK
     Route: 055
     Dates: start: 201102
  6. VESICARE [Concomitant]
     Indication: NEUROGENIC BLADDER
     Dosage: UNK
     Route: 048
     Dates: start: 201112
  7. ONBREZ [Concomitant]
     Indication: LYMPHANGIOLEIOMYOMATOSIS
     Dosage: UNK
     Route: 055
     Dates: start: 20121218
  8. TULOBUTEROL [Concomitant]
     Indication: LYMPHANGIOLEIOMYOMATOSIS
     Dosage: UNK
     Route: 062
     Dates: start: 20130402

REACTIONS (2)
  - Dyspnoea [Recovered/Resolved]
  - Chest pain [Recovered/Resolved]
